FAERS Safety Report 7867278-3 (Version None)
Quarter: 2011Q4

REPORT INFORMATION
  Report Type: 
  Country: None (occurrence: None)
  Receive Date: 20111028
  Receipt Date: 20111017
  Transmission Date: 20120403
  Serious: Yes (Hospitalization)
  Sender: FDA-Public Use
  Company Number: PHHY2011GB91377

PATIENT
  Age: 44 Year
  Sex: Male

DRUGS (3)
  1. PREDNISOLONE [Suspect]
     Indication: LIVER TRANSPLANT
     Dosage: UNK U, UNK
  2. FLUCONAZOLE [Suspect]
     Indication: LIVER TRANSPLANT
     Dosage: UNK UKN, UNK
  3. MYCOPHENOLIC ACID [Suspect]
     Indication: LIVER TRANSPLANT
     Dosage: UNK UKN, UNK

REACTIONS (7)
  - SUICIDAL IDEATION [None]
  - TRANSPLANT REJECTION [None]
  - AGITATION [None]
  - RENAL IMPAIRMENT [None]
  - JAUNDICE [None]
  - PRURITUS [None]
  - HEPATIC FAILURE [None]
